FAERS Safety Report 5319172-X (Version None)
Quarter: 2007Q1

REPORT INFORMATION
  Report Type: 
  Country: None (occurrence: None)
  Receive Date: 20070208
  Receipt Date: 20051130
  Transmission Date: 20070707
  Serious: Yes (Death, Other)
  Sender: FDA-Public Use
  Company Number: 20051130VANCO0167

PATIENT
  Age: 88 Year
  Sex: Female

DRUGS (3)
  1. VANCOMYCIN HCL [Suspect]
     Indication: CLOSTRIDIUM COLITIS
     Dosage: 1000 MG (500 MG,TWICE DAILY),ORAL
     Route: 048
     Dates: start: 20040825, end: 20040828
  2. MEROPEN (MEROPENEM TRIHYDRATE) [Suspect]
     Indication: PNEUMONIA
     Dosage: 1 GM (0.5 GM,TWICE DAILY),INTRAVENOUS
     Route: 042
     Dates: start: 20040820, end: 20040826
  3. FIRSTCIN (CEFOZOPRAN HYDROCHLORIDE) [Concomitant]

REACTIONS (1)
  - TOXIC EPIDERMAL NECROLYSIS [None]
